FAERS Safety Report 15811590 (Version 1)
Quarter: 2019Q1

REPORT INFORMATION
  Report Type: Spontaneous
  Country: US (occurrence: US)
  Receive Date: 20190111
  Receipt Date: 20190111
  Transmission Date: 20190417
  Serious: No
  Sender: FDA-Public Use
  Company Number: US-PFIZER INC-2019012433

PATIENT
  Age: 67 Year
  Sex: Male
  Weight: 66.7 kg

DRUGS (2)
  1. IODINATED CONTRAST [Suspect]
     Active Substance: IODINE
     Dosage: UNK
  2. SILVER SULFADIAZENE [Suspect]
     Active Substance: SILVER SULFADIAZINE
     Dosage: UNK

REACTIONS (1)
  - Drug hypersensitivity [Unknown]
